FAERS Safety Report 8337648-8 (Version None)
Quarter: 2012Q2

REPORT INFORMATION
  Report Type: 
  Country: None (occurrence: None)
  Receive Date: 20120504
  Receipt Date: 20120504
  Transmission Date: 20120825
  Serious: Yes (Other)
  Sender: FDA-Public Use
  Company Number: None

PATIENT
  Age: 52 Year
  Sex: Female
  Weight: 52.163 kg

DRUGS (2)
  1. ACTONEL [Suspect]
     Indication: OSTEOPOROSIS
     Dosage: |DOSAGETEXT: 15 MG||STRENGTH: 150 MG||FREQ: MONTHLY||ROUTE: ORAL|
     Route: 048
     Dates: start: 20100203, end: 20100606
  2. LEVOTHYROXINE SODIUM [Concomitant]

REACTIONS (6)
  - ARTHRALGIA [None]
  - ACTIVITIES OF DAILY LIVING IMPAIRED [None]
  - MUSCULOSKELETAL STIFFNESS [None]
  - ABDOMINAL PAIN UPPER [None]
  - GAIT DISTURBANCE [None]
  - PAIN IN EXTREMITY [None]
